FAERS Safety Report 18112225 (Version 3)
Quarter: 2020Q3

REPORT INFORMATION
  Report Type: Spontaneous
  Country: PT (occurrence: PT)
  Receive Date: 20200805
  Receipt Date: 20200824
  Transmission Date: 20201103
  Serious: Yes (Other)
  Sender: FDA-Public Use
  Company Number: PT-AUROBINDO-AUR-APL-2020-037579

PATIENT
  Age: 13 Year
  Sex: Female

DRUGS (2)
  1. IBUPROFEN 400MG [Suspect]
     Active Substance: IBUPROFEN
     Indication: HEADACHE
     Dosage: 400 MILLIGRAM (7.5MG/KG/DOSE)
     Route: 048
  2. IBUPROFEN 400MG [Suspect]
     Active Substance: IBUPROFEN
     Indication: PAIN
     Dosage: UNK UNK, ONCE A DAY (7.5 MG/KG)
     Route: 065

REACTIONS (2)
  - Medication overuse headache [Recovering/Resolving]
  - Photophobia [Recovering/Resolving]
